FAERS Safety Report 11665995 (Version 4)
Quarter: 2019Q1

REPORT INFORMATION
  Report Type: Spontaneous
  Country: TR (occurrence: TR)
  Receive Date: 20151027
  Receipt Date: 20190219
  Transmission Date: 20190417
  Serious: Yes (Hospitalization)
  Sender: FDA-Public Use
  Company Number: TR-PFIZER INC-2015363777

PATIENT
  Age: 33 Year
  Sex: Male

DRUGS (1)
  1. GABAPENTIN. [Suspect]
     Active Substance: GABAPENTIN
     Indication: PARTIAL SEIZURES
     Dosage: 2400 MG, DAILY

REACTIONS (2)
  - Gingival bleeding [Unknown]
  - Thrombocytopenia [Recovered/Resolved]
